FAERS Safety Report 8960319 (Version 1)
Quarter: 2012Q4

REPORT INFORMATION
  Report Type: 
  Country: IT (occurrence: IT)
  Receive Date: 20121211
  Receipt Date: 20121211
  Transmission Date: 20130627
  Serious: Yes (Death, Hospitalization)
  Sender: FDA-Public Use
  Company Number: IT-GLAXOSMITHKLINE-B0850697A

PATIENT
  Age: 69 Year
  Sex: Female

DRUGS (2)
  1. ARZERRA [Suspect]
     Indication: CHRONIC LYMPHOCYTIC LEUKAEMIA REFRACTORY
     Dosage: 200MG Cyclic
     Route: 065
     Dates: start: 20110214, end: 20110716
  2. RITUXIMAB [Suspect]
     Indication: CHRONIC LYMPHOCYTIC LEUKAEMIA REFRACTORY
     Dosage: 590MG Cyclic
     Route: 065
     Dates: start: 20110928, end: 20111207

REACTIONS (5)
  - Progressive multifocal leukoencephalopathy [Fatal]
  - Hemiparesis [Unknown]
  - Drug ineffective [Unknown]
  - Dysstasia [Unknown]
  - Asthenia [Unknown]
